FAERS Safety Report 13276640 (Version 1)
Quarter: 2017Q1

REPORT INFORMATION
  Report Type: Spontaneous
  Country: US (occurrence: US)
  Receive Date: 20170228
  Receipt Date: 20170228
  Transmission Date: 20170428
  Serious: Yes (Hospitalization)
  Sender: FDA-Public Use
  Company Number: None

PATIENT

DRUGS (5)
  1. CEFUROXIME. [Suspect]
     Active Substance: CEFUROXIME
  2. BUDESONIDE. [Suspect]
     Active Substance: BUDESONIDE
  3. FAMOTIDINE. [Suspect]
     Active Substance: FAMOTIDINE
  4. RANITIDINE. [Suspect]
     Active Substance: RANITIDINE
  5. CEFEPIME [Suspect]
     Active Substance: CEFEPIME HYDROCHLORIDE

REACTIONS (2)
  - Sepsis [None]
  - Clostridium test positive [None]

NARRATIVE: CASE EVENT DATE: 20150201
